FAERS Safety Report 19958337 (Version 1)
Quarter: 2021Q4

REPORT INFORMATION
  Report Type: Spontaneous
  Country: ES (occurrence: ES)
  Receive Date: 20211015
  Receipt Date: 20211015
  Transmission Date: 20220303
  Serious: Yes (Other)
  Sender: FDA-Public Use
  Company Number: None

PATIENT
  Sex: Female
  Weight: 53 kg

DRUGS (3)
  1. MALARONE [Suspect]
     Active Substance: ATOVAQUONE\PROGUANIL HYDROCHLORIDE
     Indication: Malaria prophylaxis
     Dosage: 250 MG, QD (1 PILL A DAY, AT THE SAME TIME, FOR 4 WEEKS)
     Route: 048
     Dates: start: 20210805
  2. YELLOW FEVER VACCINE NOS [Concomitant]
     Active Substance: YELLOW FEVER VIRUS STRAIN 17D-204 LIVE ANTIGEN
     Indication: Product used for unknown indication
     Dosage: 1 DF, TOTAL
     Route: 065
     Dates: start: 20210610, end: 20210610
  3. HEPATITIS A VACCINE + TYPHOID VACCINE [Concomitant]
     Indication: Product used for unknown indication
     Dosage: 1 DF, TOTAL
     Route: 065
     Dates: start: 20210603, end: 20210603

REACTIONS (1)
  - Alopecia [Not Recovered/Not Resolved]

NARRATIVE: CASE EVENT DATE: 20210818
